FAERS Safety Report 20444278 (Version 2)
Quarter: 2022Q1

REPORT INFORMATION
  Report Type: Spontaneous
  Country: US (occurrence: US)
  Receive Date: 20220208
  Receipt Date: 20220302
  Transmission Date: 20220424
  Serious: No
  Sender: FDA-Public Use
  Company Number: US-PFIZER INC-202101039173

PATIENT
  Age: 87 Year
  Sex: Female
  Weight: 66.678 kg

DRUGS (1)
  1. IBRANCE [Suspect]
     Active Substance: PALBOCICLIB
     Dosage: 75 MG CYCLIC (DAILY 1 WEEK ON, 1 WEEK OFF)
     Route: 048

REACTIONS (1)
  - Off label use [Unknown]
